FAERS Safety Report 8186839-8 (Version None)
Quarter: 2012Q1

REPORT INFORMATION
  Report Type: 
  Country: None (occurrence: None)
  Receive Date: 20120301
  Receipt Date: 20120217
  Transmission Date: 20120608
  Serious: Yes (Hospitalization, Other)
  Sender: FDA-Public Use
  Company Number: 2011SP033003

PATIENT
  Age: 45 Year
  Sex: Female

DRUGS (9)
  1. DESOGESTREL AND ETHINYL ESTRADIOL [Suspect]
     Indication: CONTRACEPTION
     Dates: start: 20070206, end: 20080301
  2. ACETAMINOPHEN [Concomitant]
  3. ZOCOR [Concomitant]
  4. PERSANTIN [Concomitant]
  5. DUPHALAC [Concomitant]
  6. TRIPHASIL-21 [Concomitant]
  7. TOILAX [Concomitant]
  8. ASPIRIN [Concomitant]
  9. TRIMETHOPRIM [Concomitant]

REACTIONS (17)
  - SENSORY DISTURBANCE [None]
  - ANGIOPATHY [None]
  - BACK PAIN [None]
  - OVARIAN CYST [None]
  - PAIN [None]
  - ANXIETY [None]
  - DEPRESSION [None]
  - PARESIS [None]
  - HYPOAESTHESIA [None]
  - PAIN IN EXTREMITY [None]
  - ABDOMINAL PAIN [None]
  - MYOPATHY [None]
  - MUSCLE SPASMS [None]
  - INFARCTION [None]
  - SPINAL ARTERY THROMBOSIS [None]
  - URINARY RETENTION [None]
  - PERONEAL NERVE PALSY [None]
